FAERS Safety Report 14625890 (Version 1)
Quarter: 2018Q1

REPORT INFORMATION
  Report Type: Spontaneous
  Country: GR (occurrence: GR)
  Receive Date: 20180312
  Receipt Date: 20180312
  Transmission Date: 20180509
  Serious: Yes (Other)
  Sender: FDA-Public Use
  Company Number: GR-009507513-1802GRC013714

PATIENT
  Age: 57 Year
  Sex: Female

DRUGS (7)
  1. PREZOLON [Suspect]
     Active Substance: PREDNISOLONE
     Indication: JOINT EFFUSION
     Dosage: 10 MG, DAILY
     Dates: start: 20160101
  2. ADALIMUMAB [Suspect]
     Active Substance: ADALIMUMAB
     Indication: JOINT EFFUSION
     Dosage: UNK
     Dates: start: 20160101
  3. METHOTREXATE SODIUM. [Suspect]
     Active Substance: METHOTREXATE SODIUM
     Indication: JOINT EFFUSION
     Dosage: 10 MG, WEEKLY
     Dates: start: 20160101
  4. FOSAVANCE [Suspect]
     Active Substance: ALENDRONATE SODIUM\CHOLECALCIFEROL
     Indication: JOINT EFFUSION
     Dosage: 5600 IU, UNK
     Route: 048
     Dates: start: 20160101
  5. INFLIXIMAB [Suspect]
     Active Substance: INFLIXIMAB
     Indication: JOINT EFFUSION
     Dosage: UNK
     Dates: start: 20160801
  6. JANUMET [Suspect]
     Active Substance: METFORMIN HYDROCHLORIDE\SITAGLIPTIN PHOSPHATE
     Indication: JOINT EFFUSION
     Dosage: UNK
     Route: 048
     Dates: start: 20160101
  7. SULFASALAZINE. [Suspect]
     Active Substance: SULFASALAZINE
     Indication: JOINT EFFUSION
     Dosage: 3 G, 2X3
     Dates: start: 20160801

REACTIONS (8)
  - Bone marrow oedema [Unknown]
  - Fall [Unknown]
  - Urinary tract infection [Unknown]
  - Pain [Unknown]
  - Immobile [Unknown]
  - Joint effusion [Unknown]
  - Sacroiliitis [Unknown]
  - Osteoporotic fracture [Unknown]

NARRATIVE: CASE EVENT DATE: 20160701
